FAERS Safety Report 7631106-1 (Version None)
Quarter: 2011Q3

REPORT INFORMATION
  Report Type: 
  Country: None (occurrence: None)
  Receive Date: 20110725
  Receipt Date: 20110318
  Transmission Date: 20111222
  Serious: No
  Sender: FDA-Public Use
  Company Number: US-BAYER-201040418NA

PATIENT
  Age: 52 Year
  Sex: Female

DRUGS (1)
  1. BETASERON [Suspect]

REACTIONS (2)
  - UNEVALUABLE EVENT [None]
  - THYROID DISORDER [None]
